FAERS Safety Report 9555921 (Version 1)
Quarter: 2013Q3

REPORT INFORMATION
  Report Type: Spontaneous
  Country: JP (occurrence: None)
  Receive Date: 20130924
  Receipt Date: 20130924
  Transmission Date: 20140515
  Serious: Yes (Death)
  Sender: FDA-Public Use
  Company Number: B0924417A

PATIENT
  Age: 30 Year
  Sex: Female

DRUGS (1)
  1. RELENZA [Suspect]
     Indication: ANTIVIRAL PROPHYLAXIS
     Route: 055

REACTIONS (2)
  - Anaphylactic reaction [None]
  - Pulse absent [None]
